FAERS Safety Report 7461687-2 (Version None)
Quarter: 2011Q2

REPORT INFORMATION
  Report Type: 
  Country: None (occurrence: None)
  Receive Date: 20110428
  Receipt Date: 20110414
  Transmission Date: 20111010
  Serious: Yes (Other)
  Sender: FDA-Public Use
  Company Number: 2011AP000743

PATIENT
  Age: 62 Year
  Sex: Female

DRUGS (2)
  1. CARBAMAZEPINE [Concomitant]
  2. LAMOTRIGINE [Suspect]
     Indication: CONVULSION
     Dates: start: 20050101, end: 20080701

REACTIONS (20)
  - COMBINED IMMUNODEFICIENCY [None]
  - POLIOVIRUS TEST POSITIVE [None]
  - VARICELLA VIRUS TEST POSITIVE [None]
  - CD4/CD8 RATIO DECREASED [None]
  - ANTIBODY TEST ABNORMAL [None]
  - BLOOD IMMUNOGLOBULIN G ABNORMAL [None]
  - ACANTHOSIS [None]
  - TONGUE ULCERATION [None]
  - LOWER RESPIRATORY TRACT INFECTION [None]
  - MEASLES ANTIBODY POSITIVE [None]
  - ORAL HAIRY LEUKOPLAKIA [None]
  - PARAKERATOSIS [None]
  - PRODUCTIVE COUGH [None]
  - DRUG RESISTANCE [None]
  - HYPERKERATOSIS [None]
  - ALANINE AMINOTRANSFERASE INCREASED [None]
  - EPSTEIN-BARR VIRUS TEST POSITIVE [None]
  - MUMPS ANTIBODY TEST POSITIVE [None]
  - RUBELLA ANTIBODY POSITIVE [None]
  - CONVULSION [None]
